FAERS Safety Report 7595025-1 (Version None)
Quarter: 2011Q2

REPORT INFORMATION
  Report Type: 
  Country: None (occurrence: None)
  Receive Date: 20110630
  Receipt Date: 20110420
  Transmission Date: 20111010
  Serious: Yes (Hospitalization)
  Sender: FDA-Public Use
  Company Number: UTC-006007

PATIENT
  Age: 69 Year
  Sex: Female

DRUGS (2)
  1. TYVASO [Suspect]
     Dosage: INHALATION
     Route: 055
     Dates: start: 20101214, end: 20110118
  2. REVATIO [Concomitant]

REACTIONS (2)
  - COLITIS [None]
  - DIARRHOEA [None]
